FAERS Safety Report 8344478-X (Version None)
Quarter: 2012Q2

REPORT INFORMATION
  Report Type: 
  Country: None (occurrence: None)
  Receive Date: 20120508
  Receipt Date: 20120430
  Transmission Date: 20120825
  Serious: Yes (Other)
  Sender: FDA-Public Use
  Company Number: US-ROCHE-766050

PATIENT
  Sex: Male
  Weight: 97.5 kg

DRUGS (2)
  1. ACCUTANE [Suspect]
     Route: 065
     Dates: start: 20021101, end: 20030501
  2. ACCUTANE [Suspect]
     Indication: ACNE
     Route: 065
     Dates: start: 20010517, end: 20010901

REACTIONS (10)
  - IRRITABLE BOWEL SYNDROME [None]
  - POUCHITIS [None]
  - BLOOD ALKALINE PHOSPHATASE INCREASED [None]
  - CHOLANGITIS SCLEROSING [None]
  - INTESTINAL OBSTRUCTION [None]
  - INFLAMMATORY BOWEL DISEASE [None]
  - CROHN'S DISEASE [None]
  - DEPRESSION [None]
  - COLITIS ULCERATIVE [None]
  - HAEMORRHOIDS [None]
